FAERS Safety Report 13169527 (Version 4)
Quarter: 2017Q3

REPORT INFORMATION
  Report Type: Report from Study
  Country: GB (occurrence: GB)
  Receive Date: 20170201
  Receipt Date: 20170817
  Transmission Date: 20171127
  Serious: Yes (Hospitalization)
  Sender: FDA-Public Use
  Company Number: PHFR2016GB009983

PATIENT
  Sex: Male

DRUGS (1)
  1. GILENYA [Suspect]
     Active Substance: FINGOLIMOD HYDROCHLORIDE
     Indication: MULTIPLE SCLEROSIS
     Dosage: 0.5 MG, QD
     Route: 065
     Dates: start: 20150211

REACTIONS (13)
  - Tachypnoea [Unknown]
  - Lethargy [Unknown]
  - Muscular weakness [Unknown]
  - Inspiratory capacity decreased [Unknown]
  - Body temperature increased [Unknown]
  - Cough [Unknown]
  - Pyrexia [Unknown]
  - Tachycardia [Unknown]
  - Malaise [Unknown]
  - Infection [Unknown]
  - Viral infection [Recovering/Resolving]
  - Lower respiratory tract infection [Recovered/Resolved]
  - Immunodeficiency [Unknown]
